FAERS Safety Report 8818297 (Version 1)
Quarter: 2012Q4

REPORT INFORMATION
  Report Type: 
  Country: US (occurrence: US)
  Receive Date: 20121001
  Receipt Date: 20121001
  Transmission Date: 20130627
  Serious: Yes (Other)
  Sender: FDA-Public Use
  Company Number: US-VIROPHARMA INCORPORATED-20120918CINRY3413

PATIENT
  Age: 46 Year
  Sex: Female

DRUGS (1)
  1. CINRYZE (C1 ESTERASE INHIBITOR (HUMAN)) [Suspect]
     Indication: HEREDITARY ANGIOEDEMA
     Dosage: unknown
     Route: 065

REACTIONS (4)
  - Back pain [Unknown]
  - Hereditary angioedema [Unknown]
  - Musculoskeletal pain [Unknown]
  - Pain in extremity [Unknown]
